FAERS Safety Report 21933415 (Version 1)
Quarter: 2023Q1

REPORT INFORMATION
  Report Type: Spontaneous
  Country: DK (occurrence: DK)
  Receive Date: 20230131
  Receipt Date: 20230131
  Transmission Date: 20230417
  Serious: Yes (Hospitalization, Disabling, Other)
  Sender: FDA-Public Use
  Company Number: DK-NOVOPROD-1018173

PATIENT
  Age: 48 Year
  Sex: Female

DRUGS (4)
  1. SAXENDA [Suspect]
     Active Substance: LIRAGLUTIDE
     Dosage: LOWEST DOSE AGAIN (DOSE NOT REPORTED)
     Dates: start: 2022
  2. SAXENDA [Suspect]
     Active Substance: LIRAGLUTIDE
     Dosage: UNK
     Dates: end: 20220803
  3. SAXENDA [Suspect]
     Active Substance: LIRAGLUTIDE
     Dosage: UNK (DOSE INCREASED)
     Dates: start: 2022
  4. SAXENDA [Suspect]
     Active Substance: LIRAGLUTIDE
     Indication: Overweight
     Dosage: LOWEST DOSE (DOSE NOT REPORTED)
     Dates: start: 202205

REACTIONS (14)
  - Back pain [Unknown]
  - Suicidal ideation [Unknown]
  - Loss of consciousness [Unknown]
  - Paralysis [Unknown]
  - Seizure [Unknown]
  - Anxiety [Unknown]
  - Feeling abnormal [Unknown]
  - Mood altered [Unknown]
  - Depressed mood [Unknown]
  - Decreased appetite [Unknown]
  - Nausea [Unknown]
  - Dry mouth [Unknown]
  - Dizziness [Unknown]
  - Fatigue [Not Recovered/Not Resolved]

NARRATIVE: CASE EVENT DATE: 20230121
